FAERS Safety Report 19506602 (Version 1)
Quarter: 2021Q3

REPORT INFORMATION
  Report Type: Spontaneous
  Country: US (occurrence: US)
  Receive Date: 20210708
  Receipt Date: 20210708
  Transmission Date: 20211014
  Serious: Yes (Other)
  Sender: FDA-Public Use
  Company Number: None

PATIENT
  Age: 45 Year
  Sex: Female
  Weight: 76.5 kg

DRUGS (1)
  1. HEB HYDROGEN PEROXIDE TOPICAL [Suspect]
     Active Substance: HYDROGEN PEROXIDE
     Indication: DENTAL DISORDER PROPHYLAXIS
     Route: 048
     Dates: start: 20210708, end: 20210708

REACTIONS (2)
  - Swelling face [None]
  - Headache [None]

NARRATIVE: CASE EVENT DATE: 20210708
